FAERS Safety Report 17429330 (Version 1)
Quarter: 2020Q1

REPORT INFORMATION
  Report Type: Spontaneous
  Country: US (occurrence: US)
  Receive Date: 20200218
  Receipt Date: 20200218
  Transmission Date: 20200409
  Serious: Yes (Other)
  Sender: FDA-Public Use
  Company Number: US-IPSEN BIOPHARMACEUTICALS, INC.-2020-03234

PATIENT
  Age: 57 Year
  Sex: Male

DRUGS (10)
  1. DICYCLOMINE [Concomitant]
     Active Substance: DICYCLOMINE HYDROCHLORIDE
  2. DIAZEPAM. [Concomitant]
     Active Substance: DIAZEPAM
  3. DIGOXIN. [Concomitant]
     Active Substance: DIGOXIN
  4. PRVASTATIN [Concomitant]
  5. SOMATULINE DEPOT [Suspect]
     Active Substance: LANREOTIDE ACETATE
     Indication: PRODUCT USED FOR UNKNOWN INDICATION
     Route: 058
     Dates: start: 20191122
  6. LIDOCAINE. [Concomitant]
     Active Substance: LIDOCAINE
  7. METOPROLOL. [Concomitant]
     Active Substance: METOPROLOL
  8. RANITIDINE. [Concomitant]
     Active Substance: RANITIDINE
  9. GABAOENTIN [Concomitant]
  10. OXYCODONE [Concomitant]
     Active Substance: OXYCODONE

REACTIONS (2)
  - Rib fracture [Not Recovered/Not Resolved]
  - Fall [Not Recovered/Not Resolved]

NARRATIVE: CASE EVENT DATE: 20200213
